FAERS Safety Report 7939627-9 (Version None)
Quarter: 2011Q4

REPORT INFORMATION
  Report Type: 
  Country: None (occurrence: None)
  Receive Date: 20111125
  Receipt Date: 20111114
  Transmission Date: 20120403
  Serious: Yes (Hospitalization, Other)
  Sender: FDA-Public Use
  Company Number: PHHY2011DE62501

PATIENT
  Sex: Female
  Weight: 47 kg

DRUGS (12)
  1. CLOZAPINE [Suspect]
     Dates: start: 20110804
  2. LORAZEPAM [Concomitant]
     Dosage: 7.5 MG/ DAY
     Route: 048
  3. MOVIPREP [Concomitant]
  4. HALDOL [Concomitant]
  5. ZYPREXA [Suspect]
     Dosage: 30 MG, QD
  6. CLOZAPINE [Suspect]
     Indication: SCHIZOPHRENIA, PARANOID TYPE
     Dosage: 200 MG, TID
     Route: 048
     Dates: end: 20110206
  7. AMISULPRIDE [Concomitant]
  8. CLEMASTINE FUMARATE [Concomitant]
     Dosage: 1 DF, QD
     Route: 048
  9. LORAZEPAM [Concomitant]
     Dosage: 1 DF, QD
  10. PANTOPRAZOLE SODIUM [Concomitant]
  11. TRUXAL [Concomitant]
  12. GASTROZEPIN [Concomitant]
     Dosage: 75 MG /DAY
     Route: 048

REACTIONS (12)
  - BRONCHOSCOPY [None]
  - HALLUCINATION, AUDITORY [None]
  - COUGH [None]
  - PERSECUTORY DELUSION [None]
  - HAEMOGLOBIN ABNORMAL [None]
  - ILEUS PARALYTIC [None]
  - INJURY [None]
  - DYSPEPSIA [None]
  - ASPIRATION [None]
  - PSYCHIATRIC DECOMPENSATION [None]
  - GENERAL PHYSICAL HEALTH DETERIORATION [None]
  - TUBERCULOSIS [None]
